FAERS Safety Report 7024363-6 (Version None)
Quarter: 2010Q4

REPORT INFORMATION
  Report Type: 
  Country: None (occurrence: None)
  Receive Date: 20101001
  Receipt Date: 20100916
  Transmission Date: 20110411
  Serious: No
  Sender: FDA-Public Use
  Company Number: US-JNJFOC-20100906077

PATIENT
  Age: 23 Year
  Sex: Male

DRUGS (3)
  1. INVEGA [Suspect]
     Indication: SCHIZOPHRENIA
     Route: 048
  2. INVEGA [Suspect]
     Route: 048
  3. ILOPERIDONE [Suspect]
     Indication: SCHIZOPHRENIA

REACTIONS (1)
  - EJACULATION DELAYED [None]
